FAERS Safety Report 12516886 (Version 2)
Quarter: 2016Q3

REPORT INFORMATION
  Report Type: Spontaneous
  Country: AT (occurrence: AT)
  Receive Date: 20160630
  Receipt Date: 20160707
  Transmission Date: 20161109
  Serious: Yes (Other)
  Sender: FDA-Public Use
  Company Number: AT-TEVA-671553ISR

PATIENT
  Age: 43 Year
  Sex: Female

DRUGS (4)
  1. SERTRALINE [Suspect]
     Active Substance: SERTRALINE HYDROCHLORIDE
  2. LEVODOPA/CARBIDOPA/ENTACAPON RATIOPHARM 125 MG/31.25 MG/200 MG FILMTAB [Concomitant]
     Dosage: LEVODOPA 125MG +CARBIDOPA 31.25MG+ENTACAPON 200 MG
  3. LACTASE CAPSULES [Concomitant]
     Indication: LACTOSE INTOLERANCE
  4. AZILECT [Suspect]
     Active Substance: RASAGILINE MESYLATE
     Indication: PARKINSON^S DISEASE

REACTIONS (4)
  - Paralysis [Recovered/Resolved]
  - General physical condition abnormal [Recovered/Resolved]
  - Hypokinesia [Recovered/Resolved]
  - Dyspnoea [Recovered/Resolved]

NARRATIVE: CASE EVENT DATE: 2016
